FAERS Safety Report 10563229 (Version 1)
Quarter: 2014Q4

REPORT INFORMATION
  Report Type: Spontaneous
  Country: US (occurrence: None)
  Receive Date: 20141103
  Receipt Date: 20141103
  Transmission Date: 20150529
  Serious: Yes (Disabling)
  Sender: FDA-Public Use
  Company Number: None

PATIENT
  Age: 53 Year
  Sex: Female
  Weight: 69.4 kg

DRUGS (1)
  1. CIPROFLOXACIN 250 MG [Suspect]
     Active Substance: CIPROFLOXACIN
     Indication: URINARY TRACT INFECTION
     Dosage: 2 PILLULES
     Dates: start: 20140929, end: 20141003

REACTIONS (6)
  - Depression [None]
  - Fine motor delay [None]
  - Asthenia [None]
  - Arthralgia [None]
  - Lip exfoliation [None]
  - Fatigue [None]

NARRATIVE: CASE EVENT DATE: 20140929
